FAERS Safety Report 9821105 (Version 1)
Quarter: 2013Q4

REPORT INFORMATION
  Report Type: Spontaneous
  Country: US (occurrence: None)
  Receive Date: 20131028
  Receipt Date: 20131028
  Transmission Date: 20140711
  Serious: Yes (Other)
  Sender: FDA-Public Use
  Company Number: 2013US001808

PATIENT
  Age: 66 Year
  Sex: Male
  Weight: 93 kg

DRUGS (3)
  1. ICLUSIG [Suspect]
     Indication: ACUTE LYMPHOCYTIC LEUKAEMIA
     Route: 048
     Dates: end: 20130526
  2. ATENOLOL (ATENOLOL) [Concomitant]
  3. WARFARIN (WARFARIN) [Concomitant]

REACTIONS (3)
  - Asthenia [None]
  - Insomnia [None]
  - Abdominal pain upper [None]
